FAERS Safety Report 14295354 (Version 1)
Quarter: 2017Q4

REPORT INFORMATION
  Report Type: Spontaneous
  Country: US (occurrence: US)
  Receive Date: 20171218
  Receipt Date: 20171218
  Transmission Date: 20180321
  Serious: No
  Sender: FDA-Public Use
  Company Number: US-PFIZER INC-2017535228

PATIENT
  Age: 54 Year
  Sex: Female
  Weight: 53.52 kg

DRUGS (14)
  1. TRINTELLIX [Concomitant]
     Active Substance: VORTIOXETINE HYDROBROMIDE
     Indication: ADJUSTMENT DISORDER WITH DEPRESSED MOOD
     Dosage: 15 MG, 1X/DAY
     Dates: start: 201606
  2. ALPRAZOLAM. [Concomitant]
     Active Substance: ALPRAZOLAM
     Indication: ANXIETY
     Dosage: 1 MG, AS NEEDED [1MG THREE TIMES A DAY AS NEEDED]
  3. BACLOFEN. [Concomitant]
     Active Substance: BACLOFEN
     Dosage: UNK, 2X/DAY
  4. OMEPRAZOLE. [Concomitant]
     Active Substance: OMEPRAZOLE
     Indication: GASTROOESOPHAGEAL REFLUX DISEASE
  5. ACETAMINOPHEN W/HYDROCODONE [Concomitant]
     Active Substance: ACETAMINOPHEN\HYDROCODONE
     Indication: PAIN
     Dosage: UNK, AS NEEDED, [ACETAMINOPHEN: 325 MG]/[HYDROCODONE: 10 MG] [EVERY 6 HOURS AS NEEDED]
     Dates: start: 2009
  6. RASUVO [Concomitant]
     Active Substance: METHOTREXATE SODIUM
     Indication: RHEUMATOID ARTHRITIS
     Dosage: UNK, WEEKLY, (ONE HALF ML INJECTION/25MG PER 0.50ML)
     Dates: start: 2016
  7. FOLIC ACID. [Concomitant]
     Active Substance: FOLIC ACID
     Dosage: 1 MG, 1X/DAY
     Dates: start: 2016
  8. LYRICA [Concomitant]
     Active Substance: PREGABALIN
     Indication: PAIN
     Dosage: 75 MG, 2X/DAY
     Dates: start: 2016
  9. BACLOFEN. [Concomitant]
     Active Substance: BACLOFEN
     Indication: MUSCLE SPASMS
     Dosage: 20 MG, AS NEEDED [20MG THREE TIMES A DAY AS NEEDED]
     Dates: start: 2013
  10. OMEPRAZOLE. [Concomitant]
     Active Substance: OMEPRAZOLE
     Indication: GASTRITIS
     Dosage: 40 MG, 1X/DAY
     Dates: start: 201707
  11. XELJANZ [Suspect]
     Active Substance: TOFACITINIB CITRATE
     Indication: RHEUMATOID ARTHRITIS
     Dosage: 5 MG, 2X/DAY
     Route: 048
     Dates: start: 201701
  12. LYRICA [Concomitant]
     Active Substance: PREGABALIN
     Indication: FIBROMYALGIA
  13. VITAMIN D3 [Concomitant]
     Active Substance: CHOLECALCIFEROL
     Indication: BONE DISORDER
     Dosage: UNK UNK, 1X/DAY
  14. VITAMIN D3 [Concomitant]
     Active Substance: CHOLECALCIFEROL
     Dosage: 5000 IU, 1X/DAY
     Dates: start: 201606

REACTIONS (2)
  - Pain in extremity [Recovering/Resolving]
  - Burning sensation [Unknown]

NARRATIVE: CASE EVENT DATE: 201711
